FAERS Safety Report 4673078-8 (Version None)
Quarter: 2005Q2

REPORT INFORMATION
  Report Type: 
  Country: None (occurrence: None)
  Receive Date: 20050523
  Receipt Date: 20050504
  Transmission Date: 20051028
  Serious: Yes (Hospitalization)
  Sender: FDA-Public Use
  Company Number: 214528

PATIENT
  Age: 63 Year
  Sex: Female
  Weight: 59 kg

DRUGS (2)
  1. HERCEPTIN [Suspect]
     Indication: BREAST CANCER METASTATIC
     Dosage: 2 MG, 1/WEEK,
     Dates: start: 20041229
  2. XELODA [Suspect]
     Indication: BREAST CANCER METASTATIC
     Dosage: 2150 UNIT, BID, ORAL
     Route: 048
     Dates: start: 20050105, end: 20050209

REACTIONS (3)
  - CONDITION AGGRAVATED [None]
  - NERVOUS SYSTEM DISORDER [None]
  - PARALYSIS [None]
